FAERS Safety Report 5798548-0 (Version None)
Quarter: 2008Q3

REPORT INFORMATION
  Report Type: 
  Country: None (occurrence: None)
  Receive Date: 20080701
  Receipt Date: 20080701
  Transmission Date: 20090109
  Serious: Yes (Hospitalization)
  Sender: FDA-Public Use
  Company Number: None

PATIENT
  Age: 57 Year
  Sex: Male

DRUGS (2)
  1. NAPROXEN [Suspect]
     Dosage: 500 MG TID PO
     Route: 048
     Dates: start: 20080414, end: 20080421
  2. WARFARIN SODIUM [Suspect]
     Dosage: 3 MG EVERY DAY PO
     Route: 048
     Dates: start: 20070612, end: 20080421

REACTIONS (5)
  - GASTRIC HAEMORRHAGE [None]
  - HAEMATEMESIS [None]
  - INTERNATIONAL NORMALISED RATIO INCREASED [None]
  - MELAENA [None]
  - OVERDOSE [None]
